FAERS Safety Report 21407459 (Version 1)
Quarter: 2022Q4

REPORT INFORMATION
  Report Type: Report from Study
  Country: CA (occurrence: CA)
  Receive Date: 20221004
  Receipt Date: 20221004
  Transmission Date: 20230113
  Serious: Yes (Other)
  Sender: FDA-Public Use
  Company Number: CA-JNJFOC-20220956012

PATIENT
  Age: 49 Year
  Sex: Female

DRUGS (2)
  1. SIMPONI [Suspect]
     Active Substance: GOLIMUMAB
     Indication: Ankylosing spondylitis
     Route: 058
     Dates: start: 20191219
  2. ADVIL [Suspect]
     Active Substance: IBUPROFEN

REACTIONS (3)
  - Ulcer haemorrhage [Unknown]
  - Injection site pain [Unknown]
  - Drug ineffective [Unknown]
